FAERS Safety Report 23898395 (Version 2)
Quarter: 2024Q2

REPORT INFORMATION
  Report Type: Report from Study
  Country: US (occurrence: US)
  Receive Date: 20240524
  Receipt Date: 20240531
  Transmission Date: 20240716
  Serious: Yes (Hospitalization)
  Sender: FDA-Public Use
  Company Number: US-ABBVIE-5771000

PATIENT
  Age: 72 Year
  Sex: Female
  Weight: 51.255 kg

DRUGS (6)
  1. SKYRIZI [Suspect]
     Active Substance: RISANKIZUMAB-RZAA
     Indication: Crohn^s disease
     Route: 058
     Dates: start: 20230410
  2. LEVOTHYROXINE [Concomitant]
     Active Substance: LEVOTHYROXINE\LEVOTHYROXINE SODIUM
     Indication: Hypothyroidism
  3. LEXAPRO [Concomitant]
     Active Substance: ESCITALOPRAM OXALATE
     Indication: Anxiety
  4. MIDODRINE [Concomitant]
     Active Substance: MIDODRINE
     Indication: Blood pressure measurement
  5. PANTOPRAZOLE [Concomitant]
     Active Substance: PANTOPRAZOLE
     Indication: Gastrooesophageal reflux disease
  6. SODIUM BICARBONATE [Concomitant]
     Active Substance: SODIUM BICARBONATE
     Indication: Supplementation therapy

REACTIONS (6)
  - Crohn^s disease [Recovered/Resolved]
  - Blood potassium decreased [Recovered/Resolved]
  - Blood phosphorus decreased [Recovered/Resolved]
  - Feeding disorder [Recovered/Resolved]
  - Blood magnesium decreased [Recovered/Resolved]
  - Anxiety [Recovering/Resolving]

NARRATIVE: CASE EVENT DATE: 20240401
